FAERS Safety Report 12237909 (Version 1)
Quarter: 2016Q2

REPORT INFORMATION
  Report Type: Spontaneous
  Country: US (occurrence: None)
  Receive Date: 20160404
  Receipt Date: 20160404
  Transmission Date: 20160815
  Serious: No
  Sender: FDA-Public Use
  Company Number: None

PATIENT
  Age: 18 Year
  Sex: Female
  Weight: 49.35 kg

DRUGS (3)
  1. FLUNISOLIDE 25 MCG/ACT NASAL SOLU. [Suspect]
     Active Substance: FLUNISOLIDE
  2. BUDESONIDE 32 MCG/ACT NASAL SOLU. [Suspect]
     Active Substance: BUDESONIDE
  3. FLUTICASONE 50 MCG/ACT NASAL SOLU. [Suspect]
     Active Substance: FLUTICASONE PROPIONATE

REACTIONS (1)
  - Drug ineffective [None]
